FAERS Safety Report 6213463-6 (Version None)
Quarter: 2009Q2

REPORT INFORMATION
  Report Type: 
  Country: None (occurrence: None)
  Receive Date: 20090603
  Receipt Date: 20090423
  Transmission Date: 20091009
  Serious: Yes (Other)
  Sender: FDA-Public Use
  Company Number: JP-PFIZER INC-2009206498

PATIENT
  Age: 74 Year

DRUGS (4)
  1. CELECOX [Suspect]
     Route: 048
  2. PLETAL [Suspect]
     Route: 048
  3. CERCINE [Suspect]
  4. ALDIOXA [Concomitant]

REACTIONS (1)
  - LIVER DISORDER [None]
